FAERS Safety Report 8122665-3 (Version None)
Quarter: 2012Q1

REPORT INFORMATION
  Report Type: 
  Country: None (occurrence: None)
  Receive Date: 20120208
  Receipt Date: 20120130
  Transmission Date: 20120608
  Serious: Yes (Hospitalization)
  Sender: FDA-Public Use
  Company Number: US-BIOGENIDEC-2012BI003880

PATIENT
  Age: 51 Year
  Sex: Male

DRUGS (1)
  1. TYSABRI [Suspect]
     Indication: MULTIPLE SCLEROSIS
     Route: 042
     Dates: start: 20091202

REACTIONS (9)
  - CONFUSIONAL STATE [None]
  - DYSARTHRIA [None]
  - BACK PAIN [None]
  - MUSCLE SPASTICITY [None]
  - CYSTITIS [None]
  - ABDOMINAL DISCOMFORT [None]
  - ABDOMINAL DISTENSION [None]
  - FATIGUE [None]
  - OEDEMA PERIPHERAL [None]
